FAERS Safety Report 18827875 (Version 1)
Quarter: 2021Q1

REPORT INFORMATION
  Report Type: Spontaneous
  Country: US (occurrence: US)
  Receive Date: 20210201
  Receipt Date: 20210201
  Transmission Date: 20210419
  Serious: No
  Sender: FDA-Public Use
  Company Number: US-ABBVIE-20K-163-3480972-00

PATIENT
  Sex: Male

DRUGS (1)
  1. HUMIRA [Suspect]
     Active Substance: ADALIMUMAB
     Indication: PRODUCT USED FOR UNKNOWN INDICATION
     Route: 058

REACTIONS (11)
  - Fatigue [Unknown]
  - Hypersensitivity [Unknown]
  - Food poisoning [Unknown]
  - Anxiety [Unknown]
  - Rhinorrhoea [Unknown]
  - Fear [Unknown]
  - Gastric disorder [Unknown]
  - Condition aggravated [Unknown]
  - Autoimmune disorder [Unknown]
  - Nausea [Unknown]
  - Nephrolithiasis [Unknown]
